FAERS Safety Report 5401862-1 (Version None)
Quarter: 2007Q3

REPORT INFORMATION
  Report Type: 
  Country: None (occurrence: None)
  Receive Date: 20070726
  Receipt Date: 20070718
  Transmission Date: 20080115
  Serious: Yes (Disabling)
  Sender: FDA-Public Use
  Company Number: OSCN-NO-0706S-0267

PATIENT
  Age: 53 Year
  Sex: Male
  Weight: 57 kg

DRUGS (13)
  1. OMNISCAN [Suspect]
     Indication: ACOUSTIC NEUROMA
     Dosage: SEE IMAGE
     Route: 042
     Dates: start: 20030402, end: 20030402
  2. OMNISCAN [Suspect]
     Indication: ACOUSTIC NEUROMA
     Dosage: SEE IMAGE
     Route: 042
     Dates: start: 20031112, end: 20031112
  3. OMNISCAN [Suspect]
     Indication: ACOUSTIC NEUROMA
     Dosage: SEE IMAGE
     Route: 042
     Dates: start: 20040509, end: 20040509
  4. OMNISCAN [Suspect]
     Indication: ACOUSTIC NEUROMA
     Dosage: SEE IMAGE
     Route: 042
     Dates: start: 20041112, end: 20041112
  5. TAKEPRON OD [Concomitant]
  6. MARZULENE-S (LEVOGLUTAMIDE W/SODIUM GUALENATE) [Concomitant]
  7. SODIUM CALCIUM [Concomitant]
  8. ISOSORBIDE DINITRATE (FRANDOL) [Concomitant]
  9. ETIZOLAM (DEPAS) [Concomitant]
  10. ETHYL ICOSAPENATATE (EPADEL S) [Concomitant]
  11. DILTIAZEM HYDROCHLORIDE (HERBESSER R) [Concomitant]
  12. WARFARIN SODIUM [Concomitant]
  13. PROHANCE [Concomitant]

REACTIONS (6)
  - CALCINOSIS [None]
  - GAIT DISTURBANCE [None]
  - GRIP STRENGTH DECREASED [None]
  - HAEMODIALYSIS [None]
  - JOINT RANGE OF MOTION DECREASED [None]
  - NEPHROGENIC SYSTEMIC FIBROSIS [None]
